FAERS Safety Report 5030423-1 (Version None)
Quarter: 2006Q2

REPORT INFORMATION
  Report Type: 
  Country: None (occurrence: None)
  Receive Date: 20060615
  Receipt Date: 20060213
  Transmission Date: 20061013
  Serious: Yes (Hospitalization)
  Sender: FDA-Public Use
  Company Number: 2006-02-0753

PATIENT
  Age: 36 Year
  Sex: Female
  Weight: 152 kg

DRUGS (4)
  1. DACARBAZINE [Suspect]
     Indication: METASTATIC MALIGNANT MELANOMA
     Dosage: SEE IMAGE
     Route: 042
     Dates: start: 20060117, end: 20060206
  2. LEXAPRO [Concomitant]
  3. PROTONIX [Concomitant]
  4. LISINOPRIL [Concomitant]

REACTIONS (1)
  - ABDOMINAL PAIN [None]
